FAERS Safety Report 4332370-7 (Version None)
Quarter: 2004Q2

REPORT INFORMATION
  Report Type: 
  Country: None (occurrence: None)
  Receive Date: 20040401
  Receipt Date: 20040318
  Transmission Date: 20050107
  Serious: Yes (Death)
  Sender: FDA-Public Use
  Company Number: JP-JNJFOC-20040304426

PATIENT
  Age: 68 Year
  Sex: Male

DRUGS (13)
  1. LEUSTATIN [Suspect]
     Indication: HAIRY CELL LEUKAEMIA
     Dosage: 4.35 MG, IN 1 DAY, INTRAVENOUS DRIP
     Route: 041
     Dates: start: 20031024, end: 20031030
  2. LEUSTATIN [Suspect]
     Indication: HAIRY CELL LEUKAEMIA
     Dosage: 4.35 MG, IN 1 DAY, INTRAVENOUS DRIP
     Route: 041
     Dates: start: 20040302, end: 20040306
  3. BACTRIM [Suspect]
     Indication: INFECTION PROPHYLAXIS
     Dosage: 1 G, IN 1 DAY, ORAL
     Route: 048
     Dates: start: 20031023
  4. DIGOXIN [Concomitant]
  5. AGENTS FOR TREATMENT OF GOUT (ANTIGOUT PREPARATIONS) [Concomitant]
  6. FLUCONAZOLE [Concomitant]
  7. DOMPERIDONE (DOMPERIDONE) [Concomitant]
  8. BROMHEXINE HYDROCHLORIDE (BROMHEXINE HYDROCHLORIDE) [Concomitant]
  9. ALLOPURINOL [Concomitant]
  10. BROTIZOLAM (BROTIZOLAM) [Concomitant]
  11. SODIUM BICARBONATE IN PLASTIC CONTAINER [Concomitant]
  12. FUROSEMIDE [Concomitant]
  13. SULPYRINE (METAMIZOLE SODIUM) [Concomitant]

REACTIONS (6)
  - BLOOD SODIUM DECREASED [None]
  - DEPRESSED LEVEL OF CONSCIOUSNESS [None]
  - METABOLIC ACIDOSIS [None]
  - RENAL TUBULAR ACIDOSIS [None]
  - SPLENOMEGALY [None]
  - WHITE BLOOD CELL COUNT INCREASED [None]
